FAERS Safety Report 7744013-0 (Version None)
Quarter: 2011Q3

REPORT INFORMATION
  Report Type: 
  Country: None (occurrence: None)
  Receive Date: 20110912
  Receipt Date: 20110901
  Transmission Date: 20111222
  Serious: Yes (Other)
  Sender: FDA-Public Use
  Company Number: US-BAYER-2011-080959

PATIENT
  Sex: Female

DRUGS (1)
  1. MIRENA [Suspect]
     Dosage: 20 MCG/24HR, CONT
     Dates: start: 20070201

REACTIONS (6)
  - UTERINE PERFORATION [None]
  - MENSTRUATION DELAYED [None]
  - PAIN IN EXTREMITY [None]
  - ABDOMINAL PAIN LOWER [None]
  - PREGNANCY WITH CONTRACEPTIVE DEVICE [None]
  - BACK PAIN [None]
